FAERS Safety Report 26070870 (Version 1)
Quarter: 2025Q4

REPORT INFORMATION
  Report Type: Spontaneous
  Country: US (occurrence: US)
  Receive Date: 20251120
  Receipt Date: 20251120
  Transmission Date: 20260118
  Serious: No
  Sender: SANOFI AVENTIS
  Company Number: US-SANOFI-02725797

PATIENT
  Sex: Female

DRUGS (1)
  1. INSULIN GLARGINE [Suspect]
     Active Substance: INSULIN GLARGINE
     Dosage: 22 UNITS- 30 UNITS  AND DRUG TREATMENT DURATION:PLEASE SEE THE DESCRIPTION
     Route: 065

REACTIONS (1)
  - Illness [Unknown]
